FAERS Safety Report 18474322 (Version 2)
Quarter: 2020Q4

REPORT INFORMATION
  Report Type: Spontaneous
  Country: JP (occurrence: JP)
  Receive Date: 20201106
  Receipt Date: 20201112
  Transmission Date: 20210114
  Serious: Yes (Other)
  Sender: FDA-Public Use
  Company Number: JP-ACACIA PHARMA LIMITED-2093666

PATIENT
  Age: 71 Year
  Sex: Male
  Weight: 69.36 kg

DRUGS (12)
  1. NEO-SYNESIN [Concomitant]
     Active Substance: PHENYLEPHRINE HYDROCHLORIDE
  2. DECADRON [Concomitant]
     Active Substance: DEXAMETHASONE
  3. ATROPINE SULFATE. [Concomitant]
     Active Substance: ATROPINE SULFATE
  4. ACELIO [Concomitant]
     Active Substance: ACETAMINOPHEN
  5. VICCILLIN [Concomitant]
     Active Substance: AMPICILLIN
  6. EPHEDRINE. [Concomitant]
     Active Substance: EPHEDRINE
  7. ULTIVA [Concomitant]
     Active Substance: REMIFENTANIL HYDROCHLORIDE
     Dates: start: 20201022
  8. ISOTONIC SODIUM CHLORIDE SOLUTION [Concomitant]
     Active Substance: SODIUM CHLORIDE
     Route: 042
     Dates: start: 20201022
  9. ESLAX [Concomitant]
     Active Substance: ROCURONIUM BROMIDE
     Dates: start: 20201022
  10. BYFAVO [Suspect]
     Active Substance: REMIMAZOLAM BESYLATE
     Indication: GENERAL ANAESTHESIA
     Route: 042
     Dates: start: 20201022
  11. PHYSIO 140 [Concomitant]
     Active Substance: CALCIUM GLUCONATE\DEXTROSE\MAGNESIUM CHLORIDE\POTASSIUM CHLORIDE\SODIUM ACETATE\SODIUM CHLORIDE\TRISODIUM CITRATE DIHYDRATE
     Route: 042
  12. HEPARIN [Concomitant]
     Active Substance: HEPARIN SODIUM
     Route: 042
     Dates: start: 20201022

REACTIONS (1)
  - Vascular access site occlusion [Unknown]

NARRATIVE: CASE EVENT DATE: 20201022
